FAERS Safety Report 11808326 (Version 1)
Quarter: 2015Q4

REPORT INFORMATION
  Report Type: Spontaneous
  Country: US (occurrence: US)
  Receive Date: 20151207
  Receipt Date: 20151207
  Transmission Date: 20160305
  Serious: No
  Sender: FDA-Public Use
  Company Number: US-ROCHE-1467394

PATIENT
  Sex: Female

DRUGS (2)
  1. ANTIVERT [Concomitant]
     Active Substance: MECLIZINE HYDROCHLORIDE
     Indication: MENIERE^S DISEASE
  2. VALIUM [Suspect]
     Active Substance: DIAZEPAM
     Indication: MENIERE^S DISEASE
     Dosage: 3 A DAY
     Route: 065

REACTIONS (4)
  - Burn oral cavity [Not Recovered/Not Resolved]
  - Dyspepsia [Unknown]
  - Product quality issue [Unknown]
  - Gastric disorder [Unknown]
